FAERS Safety Report 9169660 (Version 2)
Quarter: 2013Q1

REPORT INFORMATION
  Report Type: Spontaneous
  Country: JP (occurrence: JP)
  Receive Date: 20130318
  Receipt Date: 20130329
  Transmission Date: 20140127
  Serious: Yes (Other)
  Sender: FDA-Public Use
  Company Number: JP-009507513-1303JPN002846

PATIENT
  Age: 28 Year
  Sex: Male

DRUGS (7)
  1. BONALON [Suspect]
     Indication: OSTEOPOROSIS
     Dosage: 35 MG, QW
     Route: 048
     Dates: start: 20130222, end: 20130228
  2. VENILON [Suspect]
     Indication: ALLERGIC GRANULOMATOUS ANGIITIS
     Dosage: 20 G, QD, ROUTE DR
     Dates: start: 20130213, end: 20130217
  3. BAKTAR [Suspect]
     Indication: INFECTION PROPHYLAXIS
     Dosage: 1 DF, UNK
     Route: 048
     Dates: start: 20130205, end: 20130228
  4. TAKEPRON [Suspect]
     Indication: PROPHYLAXIS AGAINST GASTROINTESTINAL ULCER
     Dosage: 15 MG, UNK
     Route: 048
     Dates: start: 20130115, end: 20130228
  5. MIYA-BM [Concomitant]
     Dosage: 3 G, QD
     Route: 048
     Dates: start: 20130113, end: 20130228
  6. MAINTATE [Concomitant]
     Indication: TACHYCARDIA
     Dosage: 25 MG, QD
     Route: 048
     Dates: start: 20130223, end: 20130228
  7. AMOBAN [Concomitant]
     Indication: INSOMNIA
     Dosage: 7.5 MG, QD
     Route: 048
     Dates: start: 20130115, end: 20130228

REACTIONS (1)
  - Neutrophil count decreased [Recovered/Resolved]
